FAERS Safety Report 9682022 (Version 1)
Quarter: 2013Q4

REPORT INFORMATION
  Report Type: Spontaneous
  Country: US (occurrence: US)
  Receive Date: 20131111
  Receipt Date: 20131111
  Transmission Date: 20140711
  Serious: Yes (Hospitalization)
  Sender: FDA-Public Use
  Company Number: US-PFIZER INC-2013320616

PATIENT
  Age: 54 Year
  Sex: Male
  Weight: 65.76 kg

DRUGS (8)
  1. LIPITOR [Suspect]
     Indication: BLOOD CHOLESTEROL INCREASED
     Dosage: 20 MG, 1X/DAY
     Dates: start: 2005
  2. ASPIRIN [Concomitant]
     Dosage: 81 MG, 1X/DAY
  3. COREG [Concomitant]
     Dosage: 3.125 MG, 1X/DAY
  4. FLEXERIL [Concomitant]
     Dosage: 10 MG, UNK
  5. ULTRAM [Concomitant]
     Dosage: 50 MG, UNK
  6. IMDUR [Concomitant]
     Dosage: 30 MG, UNK
  7. LISINOPRIL [Concomitant]
     Dosage: 2.5 MG, UNK
  8. COUMADIN [Concomitant]
     Dosage: 10 MG, UNK

REACTIONS (2)
  - Cardiac disorder [Unknown]
  - Drug ineffective [Unknown]
